FAERS Safety Report 4561566-4 (Version None)
Quarter: 2005Q1

REPORT INFORMATION
  Report Type: 
  Country: None (occurrence: None)
  Receive Date: 20050121
  Receipt Date: 20050105
  Transmission Date: 20050727
  Serious: Yes (Other)
  Sender: FDA-Public Use
  Company Number: USA041286236

PATIENT
  Age: 42 Year
  Sex: Female

DRUGS (7)
  1. PROZAC [Suspect]
     Indication: DEPRESSION
     Dosage: 40 MG DAY
     Dates: start: 19880101, end: 20041123
  2. CYMBALTA [Suspect]
     Indication: DEPRESSION
     Dosage: 60 MG DAY
     Dates: start: 20041123, end: 20041212
  3. TEGRETOL (CARBAMAZEPINE RIVOPHARM) [Concomitant]
  4. DESYREL [Concomitant]
  5. REMERON (MIRTAZAPINE ORIFARM) [Concomitant]
  6. KLONOPIN [Concomitant]
  7. DURAGESIC [Concomitant]

REACTIONS (19)
  - AGEUSIA [None]
  - AMNESIA [None]
  - ANGER [None]
  - CELLULITIS [None]
  - CONDITION AGGRAVATED [None]
  - CONVERSION DISORDER [None]
  - CONVULSION [None]
  - DEPRESSION [None]
  - HALLUCINATION, OLFACTORY [None]
  - HEADACHE [None]
  - HYPERTENSION [None]
  - HYPOAESTHESIA [None]
  - INTERVERTEBRAL DISC PROTRUSION [None]
  - MULTIPLE SCLEROSIS [None]
  - PULMONARY MASS [None]
  - SPEECH DISORDER [None]
  - SUICIDAL IDEATION [None]
  - TEMPORAL LOBE EPILEPSY [None]
  - TRIGEMINAL NEURALGIA [None]
